FAERS Safety Report 5659398-9 (Version None)
Quarter: 2008Q1

REPORT INFORMATION
  Report Type: 
  Country: None (occurrence: None)
  Receive Date: 20080311
  Receipt Date: 20080222
  Transmission Date: 20080703
  Serious: Yes (Life-Threatening, Other)
  Sender: FDA-Public Use
  Company Number: GB-RANBAXY-2008RR-13297

PATIENT

DRUGS (7)
  1. LISINOPRIL [Suspect]
     Indication: HYPERTENSION
     Dosage: 10 MG, QD
     Route: 048
     Dates: start: 20070801, end: 20080124
  2. FLUOXETINE [Concomitant]
     Dosage: 40 MG, QD
     Route: 048
  3. GLYCOPYROLATE [Concomitant]
  4. NEOSTIGMINE [Concomitant]
  5. ACETAMINOPHEN [Concomitant]
     Dosage: 1 DF, UNK
     Route: 042
  6. PROPOFOL [Concomitant]
  7. ROCURONIUM BROMIDE [Concomitant]

REACTIONS (3)
  - DYSPHAGIA [None]
  - DYSPNOEA [None]
  - SWOLLEN TONGUE [None]
